FAERS Safety Report 7995423-8 (Version None)
Quarter: 2011Q4

REPORT INFORMATION
  Report Type: 
  Country: None (occurrence: None)
  Receive Date: 20111220
  Receipt Date: 20111214
  Transmission Date: 20120403
  Serious: Yes (Hospitalization)
  Sender: FDA-Public Use
  Company Number: CH-PFIZER INC-2011286507

PATIENT
  Age: 82 Year
  Sex: Female

DRUGS (13)
  1. TILUR [Suspect]
     Dosage: 90 MG, 2X/DAY
     Route: 048
     Dates: end: 20090803
  2. RAMIPRIL [Suspect]
     Dosage: 1.25 MG, 1X/DAY
     Route: 048
     Dates: end: 20090803
  3. COLECALCIFEROL [Concomitant]
     Dosage: 800MG  / 1200MG, 1X/DAY
     Route: 048
  4. DIPIPERON [Concomitant]
     Dosage: 10 MG, 1X/DAY
     Route: 048
  5. SPASMO-URGENIN N [Concomitant]
     Dosage: 20 MG, 2X/DAY
     Route: 048
  6. ALDACTONE [Suspect]
     Dosage: 1 DF, 1X/DAY
     Route: 048
     Dates: end: 20090803
  7. NORFLOXACIN [Suspect]
     Indication: URINARY TRACT INFECTION
     Dosage: 400 MG, UNK
     Route: 048
     Dates: start: 20090730, end: 20090803
  8. TRIALIX [Suspect]
     Dosage: 0.5 DF, 1X/DAY
     Route: 048
     Dates: end: 20090803
  9. ACETAMINOPHEN [Concomitant]
     Dosage: 1 G, 2X/DAY
     Route: 048
  10. COLLUNOSOL-N [Concomitant]
     Dosage: 1 DF, 4X/DAY
     Route: 055
     Dates: end: 20090801
  11. CONDROSULF [Concomitant]
     Dosage: 800 MG, 1X/DAY
     Route: 048
     Dates: end: 20090803
  12. NORFLOXACIN [Suspect]
     Indication: UROSEPSIS
  13. CALCIMAGON-D3 [Concomitant]
     Dosage: 1 DF, 2X/DAY
     Route: 048

REACTIONS (3)
  - RENAL FAILURE ACUTE [None]
  - GASTROINTESTINAL HAEMORRHAGE [None]
  - DUODENAL ULCER [None]
